FAERS Safety Report 12703672 (Version 1)
Quarter: 2016Q3

REPORT INFORMATION
  Report Type: Report from Study
  Country: CO (occurrence: CO)
  Receive Date: 20160831
  Receipt Date: 20160831
  Transmission Date: 20161109
  Serious: Yes (Hospitalization)
  Sender: FDA-Public Use
  Company Number: CO-JNJFOC-20160826050

PATIENT
  Age: 53 Year
  Sex: Female
  Weight: 60 kg

DRUGS (1)
  1. RISPERDAL CONSTA [Suspect]
     Active Substance: RISPERIDONE
     Indication: SCHIZOAFFECTIVE DISORDER
     Route: 030
     Dates: start: 20160708

REACTIONS (2)
  - Aggression [Not Recovered/Not Resolved]
  - Impaired self-care [Not Recovered/Not Resolved]

NARRATIVE: CASE EVENT DATE: 20160814
